FAERS Safety Report 4376287-0 (Version None)
Quarter: 2004Q2

REPORT INFORMATION
  Report Type: 
  Country: None (occurrence: None)
  Receive Date: 20040608
  Receipt Date: 20031201
  Transmission Date: 20050107
  Serious: Yes (Other)
  Sender: FDA-Public Use
  Company Number: 200314459BCC

PATIENT
  Age: 43 Year
  Sex: Female
  Weight: 69.4003 kg

DRUGS (3)
  1. ALEVE [Suspect]
     Indication: PAIN IN EXTREMITY
     Dosage: 440 MG, QD, ORAL; 220 MG, QD, ORAL
     Route: 048
     Dates: start: 20031125
  2. ALEVE [Suspect]
     Indication: PAIN IN EXTREMITY
     Dosage: 440 MG, QD, ORAL; 220 MG, QD, ORAL
     Route: 048
     Dates: start: 20031126
  3. BIRTH CONTROL [Concomitant]

REACTIONS (3)
  - ANGIONEUROTIC OEDEMA [None]
  - OROPHARYNGEAL SWELLING [None]
  - SWOLLEN TONGUE [None]
